FAERS Safety Report 5277174-6 (Version None)
Quarter: 2007Q1

REPORT INFORMATION
  Report Type: 
  Country: None (occurrence: None)
  Receive Date: 20070322
  Receipt Date: 20070322
  Transmission Date: 20070707
  Serious: Yes (Other)
  Sender: FDA-Public Use
  Company Number: None

PATIENT
  Age: 23 Year
  Sex: Female
  Weight: 67.1 kg

DRUGS (1)
  1. VENOFER [Suspect]
     Indication: ANAEMIA
     Dosage: 200 MG ONCE IV BOLUS
     Route: 040

REACTIONS (5)
  - ACUTE RESPIRATORY DISTRESS SYNDROME [None]
  - APNOEA [None]
  - CEREBROVASCULAR ACCIDENT [None]
  - PNEUMONIA [None]
  - PULSE ABSENT [None]
